FAERS Safety Report 13942725 (Version 2)
Quarter: 2017Q4

REPORT INFORMATION
  Report Type: Report from Study
  Country: US (occurrence: US)
  Receive Date: 20170907
  Receipt Date: 20171010
  Transmission Date: 20180320
  Serious: Yes (Other)
  Sender: FDA-Public Use
  Company Number: US-ROCHE-1988237

PATIENT
  Age: 28 Year
  Sex: Male
  Weight: 98.9 kg

DRUGS (3)
  1. ATEZOLIZUMAB. [Suspect]
     Active Substance: ATEZOLIZUMAB
     Route: 042
     Dates: start: 20170516
  2. ATEZOLIZUMAB. [Suspect]
     Active Substance: ATEZOLIZUMAB
     Dosage: DATE OF MOST RECENT DOSE 27/JUN/2017, PRIOR TO EVENT ONSET?OVER 30-60 MINUTES ON DAY 1. COURSES REPE
     Route: 042
     Dates: start: 20170606
  3. ATEZOLIZUMAB. [Suspect]
     Active Substance: ATEZOLIZUMAB
     Indication: ALVEOLAR SOFT PART SARCOMA
     Route: 042
     Dates: start: 20170426

REACTIONS (2)
  - Blood bilirubin increased [Unknown]
  - Hypophosphataemia [Recovering/Resolving]

NARRATIVE: CASE EVENT DATE: 20170718
